FAERS Safety Report 10642721 (Version 1)
Quarter: 2014Q4

REPORT INFORMATION
  Report Type: Spontaneous
  Country: US (occurrence: None)
  Receive Date: 20141121
  Receipt Date: 20141121
  Transmission Date: 20150529
  Serious: No
  Sender: FDA-Public Use
  Company Number: 163-10004-14092678

PATIENT
  Age: 59 Year
  Sex: Male

DRUGS (5)
  1. HYDROCODONE/ACETAMINOPHEN (REMEDEINE /01204101/) [Concomitant]
  2. LORAZEPAM. [Concomitant]
     Active Substance: LORAZEPAM
  3. OTEZLA [Suspect]
     Active Substance: APREMILAST
     Indication: PSORIATIC ARTHROPATHY
     Route: 048
     Dates: start: 20140903
  4. MORPHINE SULFATE. [Concomitant]
     Active Substance: MORPHINE SULFATE
  5. TIZANIDINE (TIZANIDINE) [Concomitant]
     Active Substance: TIZANIDINE

REACTIONS (3)
  - Parosmia [None]
  - Activities of daily living impaired [None]
  - Feeling abnormal [None]

NARRATIVE: CASE EVENT DATE: 20140903
